FAERS Safety Report 5537456-7 (Version None)
Quarter: 2007Q4

REPORT INFORMATION
  Report Type: 
  Country: None (occurrence: None)
  Receive Date: 20071207
  Receipt Date: 20071203
  Transmission Date: 20080405
  Serious: Yes (Death)
  Sender: FDA-Public Use
  Company Number: BR-BRISTOL-MYERS SQUIBB COMPANY-14000418

PATIENT
  Age: 36 Year
  Sex: Female

DRUGS (1)
  1. ABILIFY [Suspect]
     Indication: SCHIZOAFFECTIVE DISORDER
     Dosage: STARTED WITH 5 MG DAILY AND INCREASED TO 30 MG DAILY ON 13-NOV-2007.
     Dates: start: 20071001

REACTIONS (2)
  - COMPLETED SUICIDE [None]
  - HEPATIC CIRRHOSIS [None]
